FAERS Safety Report 11488431 (Version 1)
Quarter: 2015Q3

REPORT INFORMATION
  Report Type: Spontaneous
  Country: US (occurrence: US)
  Receive Date: 20150910
  Receipt Date: 20150910
  Transmission Date: 20151125
  Serious: No
  Sender: FDA-Public Use
  Company Number: US-ROCHE-1460739

PATIENT
  Sex: Female

DRUGS (7)
  1. RIBASPHERE [Concomitant]
     Active Substance: RIBAVIRIN
  2. ESTROVEN [Concomitant]
     Active Substance: DIETARY SUPPLEMENT
  3. XANAX [Concomitant]
     Active Substance: ALPRAZOLAM
  4. OMEPRAZOLE. [Concomitant]
     Active Substance: OMEPRAZOLE
  5. BENADRYL [Concomitant]
     Active Substance: DIPHENHYDRAMINE HYDROCHLORIDE
  6. PEGASYS [Suspect]
     Active Substance: PEGINTERFERON ALFA-2A
     Indication: CHRONIC HEPATITIS C
     Route: 058
     Dates: start: 20140725
  7. IMODIUM [Concomitant]
     Active Substance: LOPERAMIDE HYDROCHLORIDE

REACTIONS (4)
  - Diarrhoea [Unknown]
  - Influenza like illness [Unknown]
  - Nausea [Unknown]
  - Hyperchlorhydria [Unknown]
